FAERS Safety Report 18717542 (Version 2)
Quarter: 2021Q1

REPORT INFORMATION
  Report Type: Spontaneous
  Country: PK (occurrence: PK)
  Receive Date: 20210108
  Receipt Date: 20210122
  Transmission Date: 20210419
  Serious: Yes (Death, Hospitalization, Other)
  Sender: FDA-Public Use
  Company Number: PK-NOVOPROD-778375

PATIENT
  Age: 73 Year
  Sex: Male

DRUGS (1)
  1. NOVOMIX 30 FLEXPEN [Suspect]
     Active Substance: INSULIN ASPART
     Indication: TYPE 2 DIABETES MELLITUS
     Dosage: 40 IU, QD (20+20 UNITS PER DAY)
     Route: 058
     Dates: start: 20170101, end: 20201118

REACTIONS (1)
  - SARS-CoV-2 test positive [Fatal]

NARRATIVE: CASE EVENT DATE: 20201118
